FAERS Safety Report 20568805 (Version 1)
Quarter: 2022Q1

REPORT INFORMATION
  Report Type: Report from Study
  Country: US (occurrence: US)
  Receive Date: 20220308
  Receipt Date: 20220308
  Transmission Date: 20220423
  Serious: Yes (Hospitalization)
  Sender: FDA-Public Use
  Company Number: US-BAYER-2022A024717

PATIENT
  Age: 40 Year
  Sex: Male

DRUGS (2)
  1. STIVARGA [Suspect]
     Active Substance: REGORAFENIB
     Indication: Bone cancer
     Dosage: 120 MG, QD
     Route: 048
     Dates: start: 20220215
  2. STIVARGA [Suspect]
     Active Substance: REGORAFENIB
     Indication: Malignant joint neoplasm

REACTIONS (4)
  - Constipation [Unknown]
  - Malaise [Not Recovered/Not Resolved]
  - Abdominal pain upper [Not Recovered/Not Resolved]
  - Off label use [None]

NARRATIVE: CASE EVENT DATE: 20220215
